FAERS Safety Report 5321260-9 (Version None)
Quarter: 2007Q2

REPORT INFORMATION
  Report Type: 
  Country: None (occurrence: None)
  Receive Date: 20070507
  Receipt Date: 20070507
  Transmission Date: 20071010
  Serious: No
  Sender: FDA-Public Use
  Company Number: None

PATIENT
  Age: 47 Year
  Sex: Female
  Weight: 70.3075 kg

DRUGS (1)
  1. DEPLIN 7.5 MG PAMLAB [Suspect]
     Indication: DEPRESSION
     Dosage: 7.5 MG ONE PER DAY PO
     Route: 048
     Dates: start: 20070422, end: 20070505

REACTIONS (2)
  - CRYING [None]
  - DEPRESSED MOOD [None]
